FAERS Safety Report 23116272 (Version 1)
Quarter: 2023Q4

REPORT INFORMATION
  Report Type: Spontaneous
  Country: CN (occurrence: CN)
  Receive Date: 20231027
  Receipt Date: 20231027
  Transmission Date: 20240109
  Serious: Yes (Other)
  Sender: FDA-Public Use
  Company Number: None

PATIENT
  Age: 80 Year
  Sex: Male

DRUGS (3)
  1. MANNITOL [Suspect]
     Active Substance: MANNITOL
     Indication: Meningioma
     Dosage: 125 MILLILITERS (ML), 3 TIMES DAILY
     Route: 041
     Dates: start: 20230920, end: 20230922
  2. MANNITOL [Suspect]
     Active Substance: MANNITOL
     Indication: Dehydration
  3. FUROSEMIDE [Suspect]
     Active Substance: FUROSEMIDE
     Indication: Meningioma
     Dosage: 5 MILLIGRAMS (MG), ONCE DAILY (MANUFACTURER: SHANGHAI HEFENG PHARMACEUTICAL CO. LTD.)
     Route: 042
     Dates: start: 20230922, end: 20230926

REACTIONS (3)
  - Brain oedema [Unknown]
  - Epilepsy [Unknown]
  - Hyperchloraemia [Recovered/Resolved]

NARRATIVE: CASE EVENT DATE: 20230922
